FAERS Safety Report 11054809 (Version 1)
Quarter: 2015Q2

REPORT INFORMATION
  Report Type: Spontaneous
  Country: FI (occurrence: None)
  Receive Date: 20150420
  Receipt Date: 20150420
  Transmission Date: 20150821
  Serious: Yes (Hospitalization)
  Sender: FDA-Public Use
  Company Number: 20151138

PATIENT
  Age: 65 Year
  Sex: Male

DRUGS (7)
  1. METOJECT [Suspect]
     Active Substance: METHOTREXATE SODIUM
     Indication: RHEUMATOID ARTHRITIS
     Route: 058
     Dates: start: 201301, end: 20141204
  2. ENBREL [Suspect]
     Active Substance: ETANERCEPT
     Indication: RHEUMATOID ARTHRITIS
     Route: 058
     Dates: start: 20140317, end: 20141204
  3. PREDNISOLON (PREDNISOLONE) [Concomitant]
  4. ARCOXIA / ETORIOCOXIB [Concomitant]
  5. FOLIC ACID. [Concomitant]
     Active Substance: FOLIC ACID
  6. SALAZOPYRIN (SULFASALAZINE) [Concomitant]
  7. OXIKLORIN (HYDROXYCHLOROQUINE SULFATE) [Concomitant]

REACTIONS (2)
  - Pneumonia staphylococcal [None]
  - Drug interaction [None]

NARRATIVE: CASE EVENT DATE: 20141204
